FAERS Safety Report 20325466 (Version 1)
Quarter: 2022Q1

REPORT INFORMATION
  Report Type: Spontaneous
  Country: FR (occurrence: FR)
  Receive Date: 20220112
  Receipt Date: 20220112
  Transmission Date: 20220424
  Serious: Yes (Other)
  Sender: FDA-Public Use
  Company Number: FR-AFSSAPS-AVNT20220002

PATIENT
  Age: 26 Year
  Sex: Female

DRUGS (2)
  1. TRAMADOL [Suspect]
     Active Substance: TRAMADOL
     Indication: Product used for unknown indication
     Dosage: 2 ??? 3 CPS 2 FOIS/SEMAINE
     Route: 048
  2. ALCOHOL [Suspect]
     Active Substance: ALCOHOL
     Indication: Product used for unknown indication
     Dosage: 2 FOIS/SEMAINE DE TYPE BINGE DRINKING
     Route: 048

REACTIONS (1)
  - Drug use disorder [Not Recovered/Not Resolved]
